FAERS Safety Report 6435986-7 (Version None)
Quarter: 2009Q4

REPORT INFORMATION
  Report Type: 
  Country: None (occurrence: None)
  Receive Date: 20091111
  Receipt Date: 20091109
  Transmission Date: 20100525
  Serious: Yes (Hospitalization)
  Sender: FDA-Public Use
  Company Number: US-RB-024432-09

PATIENT
  Age: 14 Month
  Sex: Male
  Weight: 8.7 kg

DRUGS (1)
  1. BUPRENORPHINE HCL AND NALOXONE HCL [Suspect]
     Dosage: UNKNOWN AMOUNT OF 8 MG TABLETS.
     Route: 048

REACTIONS (2)
  - ACCIDENTAL EXPOSURE [None]
  - DEPRESSED LEVEL OF CONSCIOUSNESS [None]
